FAERS Safety Report 5604657-9 (Version None)
Quarter: 2008Q1

REPORT INFORMATION
  Report Type: 
  Country: None (occurrence: None)
  Receive Date: 20080124
  Receipt Date: 20080124
  Transmission Date: 20080703
  Serious: Yes (Other)
  Sender: FDA-Public Use
  Company Number: None

PATIENT
  Sex: Female
  Weight: 68.0396 kg

DRUGS (3)
  1. ZETIA [Suspect]
     Indication: MUSCLE SPASMS
     Dosage: ONE TABLET DAILY PO
     Route: 048
     Dates: start: 20071227, end: 20080108
  2. VYTORIN [Suspect]
     Indication: MUSCLE SPASMS
     Dosage: ONE TABLET DAILY PO
     Route: 048
     Dates: start: 20060810, end: 20061115
  3. CRESTOR [Concomitant]

REACTIONS (3)
  - GAIT DISTURBANCE [None]
  - MUSCLE SPASMS [None]
  - MYALGIA [None]
